FAERS Safety Report 17688835 (Version 1)
Quarter: 2020Q2

REPORT INFORMATION
  Report Type: Report from Study
  Country: PK (occurrence: PK)
  Receive Date: 20200421
  Receipt Date: 20200421
  Transmission Date: 20200714
  Serious: Yes (Other)
  Sender: FDA-Public Use
  Company Number: NVSC2020PK105591

PATIENT
  Age: 73 Year
  Sex: Male
  Weight: 76 kg

DRUGS (2)
  1. GLIVEC [Suspect]
     Active Substance: IMATINIB MESYLATE
     Dosage: 400 MG, QD (100 MG 4 OD)
     Route: 048
     Dates: start: 20200416
  2. GLIVEC [Suspect]
     Active Substance: IMATINIB MESYLATE
     Indication: CHRONIC MYELOID LEUKAEMIA
     Dosage: 600 MG, QD (100 MG 6OD)
     Route: 048
     Dates: start: 20180926, end: 20200415

REACTIONS (3)
  - Incorrect dose administered [Unknown]
  - Leukocytosis [Not Recovered/Not Resolved]
  - Anaemia [Not Recovered/Not Resolved]

NARRATIVE: CASE EVENT DATE: 20180926
